FAERS Safety Report 6260688-X (Version None)
Quarter: 2009Q3

REPORT INFORMATION
  Report Type: 
  Country: None (occurrence: None)
  Receive Date: 20090708
  Receipt Date: 20090702
  Transmission Date: 20100115
  Serious: Yes (Other)
  Sender: FDA-Public Use
  Company Number: GB-BAXTER-2009BH011099

PATIENT
  Sex: Female

DRUGS (5)
  1. FLUCONAZOLE [Suspect]
     Indication: ENDOCARDITIS BACTERIAL
     Route: 065
  2. CIPROFLOXACIN REDIBAG [Suspect]
     Indication: ENDOCARDITIS BACTERIAL
     Route: 065
  3. DAPTOMYCIN [Suspect]
     Indication: ENDOCARDITIS BACTERIAL
     Route: 065
  4. NEORAL [Suspect]
     Indication: APLASTIC ANAEMIA
     Route: 065
  5. RIFAMPICIN [Suspect]
     Indication: ENDOCARDITIS BACTERIAL
     Route: 065

REACTIONS (1)
  - DRUG INTERACTION [None]
